FAERS Safety Report 5577664-2 (Version None)
Quarter: 2007Q4

REPORT INFORMATION
  Report Type: 
  Country: None (occurrence: None)
  Receive Date: 20071231
  Receipt Date: 20071217
  Transmission Date: 20080405
  Serious: Yes (Hospitalization)
  Sender: FDA-Public Use
  Company Number: US-KINGPHARMUSA00001-K200701629

PATIENT

DRUGS (7)
  1. AVINZA [Suspect]
     Indication: TRIGEMINAL NEURALGIA
     Dosage: 360 MG, QD
     Route: 048
     Dates: end: 20071210
  2. ACTIQ [Suspect]
     Indication: BREAKTHROUGH PAIN
     Dosage: 8- 10 LOSENGES, QD
     Dates: end: 20071210
  3. LORAZEPAM [Concomitant]
     Indication: DEPRESSION
  4. STRATTERA [Concomitant]
     Indication: ANXIETY DISORDER
  5. PROPANOLOL    /00030001/ [Concomitant]
     Indication: ESSENTIAL TREMOR
  6. ANDROGEL [Concomitant]
  7. TRAZODONE HCL [Concomitant]
     Indication: SLEEP DISORDER
     Dosage: UNK, UNK

REACTIONS (5)
  - CONSTIPATION [None]
  - DETOXIFICATION [None]
  - INTENTIONAL DRUG MISUSE [None]
  - TOXICOLOGIC TEST ABNORMAL [None]
  - WITHDRAWAL SYNDROME [None]
